FAERS Safety Report 8575923-2 (Version None)
Quarter: 2012Q2

REPORT INFORMATION
  Report Type: 
  Country: None (occurrence: None)
  Receive Date: 20120423
  Receipt Date: 20100205
  Transmission Date: 20120825
  Serious: Yes (Other)
  Sender: FDA-Public Use
  Company Number: PHEH2010US02160

PATIENT
  Sex: Female

DRUGS (3)
  1. EXJADE [Suspect]
     Indication: IRON OVERLOAD
     Dosage: 650 MG, QD, ORAL
     Route: 048
  2. EXJADE [Suspect]
     Indication: HAEMOCHROMATOSIS
     Dosage: 650 MG, QD, ORAL
     Route: 048
  3. BLOOD TRANSFUSION, AUXILIARY PRODUCTS [Concomitant]

REACTIONS (1)
  - SERUM FERRITIN INCREASED [None]
